FAERS Safety Report 7187046 (Version 2)
Quarter: 2012Q4

REPORT INFORMATION
  Report Type: 
  Country: CA (occurrence: CA)
  Receive Date: 20091124
  Receipt Date: 20121109
  Transmission Date: 20130627
  Serious: Yes (Other)
  Sender: FDA-Public Use
  Company Number: PHHY2009CA49845

PATIENT
  Sex: Female

DRUGS (1)
  1. SANDOSTATIN LAR [Suspect]
     Indication: ACROMEGALY
     Dosage: 30 mg, Every 4 weeks
     Route: 030
     Dates: start: 20081001

REACTIONS (4)
  - Hernia [Recovering/Resolving]
  - Insomnia [Unknown]
  - Affective disorder [Unknown]
  - Flatulence [Unknown]
